FAERS Safety Report 9984651 (Version 2)
Quarter: 2014Q2

REPORT INFORMATION
  Report Type: Spontaneous
  Country: US (occurrence: US)
  Receive Date: 20140307
  Receipt Date: 20140606
  Transmission Date: 20141212
  Serious: No
  Sender: FDA-Public Use
  Company Number: US-GLAXOSMITHKLINE-A1056170A

PATIENT
  Age: 67 Year
  Sex: Female
  Weight: 50.5 kg

DRUGS (10)
  1. BREO ELLIPTA [Suspect]
     Indication: CHRONIC OBSTRUCTIVE PULMONARY DISEASE
     Dosage: 1PUFF PER DAY
     Route: 055
     Dates: start: 20131205, end: 20140330
  2. RAMIPRIL [Concomitant]
  3. REMERON [Concomitant]
  4. ALPRAZOLAM [Concomitant]
  5. ALBUTEROL NEBULIZER [Concomitant]
  6. VENTOLIN [Concomitant]
  7. MUCINEX [Concomitant]
  8. PREVACID [Concomitant]
  9. NASACORT [Concomitant]
  10. ADVAIR [Concomitant]

REACTIONS (2)
  - Anxiety [Recovered/Resolved]
  - Nervousness [Recovered/Resolved]
